FAERS Safety Report 12648919 (Version 1)
Quarter: 2016Q3

REPORT INFORMATION
  Report Type: Spontaneous
  Country: US (occurrence: US)
  Receive Date: 20160812
  Receipt Date: 20160812
  Transmission Date: 20161109
  Serious: No
  Sender: FDA-Public Use
  Company Number: US-TEIKOKU PHARMA USA-TPU2016-00530

PATIENT
  Age: 57 Year
  Sex: Male

DRUGS (2)
  1. TROCAR INSERTION [Suspect]
     Active Substance: DEVICE
     Indication: SPINAL DECOMPRESSION
  2. LIDODERM [Suspect]
     Active Substance: LIDOCAINE
     Indication: PAIN
     Dosage: CUT INTO 2 PIECES, TOPICALLY TO LOWER BACK, FREQUENCY NOT REPORTED
     Route: 061

REACTIONS (3)
  - Wrong technique in product usage process [None]
  - Product adhesion issue [None]
  - Anaesthetic complication [Recovered/Resolved]
